FAERS Safety Report 24098130 (Version 1)
Quarter: 2024Q3

REPORT INFORMATION
  Report Type: Report from Study
  Country: US (occurrence: US)
  Receive Date: 20240716
  Receipt Date: 20240716
  Transmission Date: 20241017
  Serious: Yes (Other)
  Sender: AVADEL CNS PHARMA
  Company Number: US-AVADEL CNS PHARMACEUTICALS, LLC-2024AVA01125

PATIENT
  Age: 34 Year
  Sex: Female

DRUGS (1)
  1. LUMRYZ [Suspect]
     Active Substance: SODIUM OXYBATE
     Dosage: UNK

REACTIONS (8)
  - Altered state of consciousness [Unknown]
  - Asthenia [Unknown]
  - Feeling abnormal [Unknown]
  - Muscular weakness [Unknown]
  - Nocturia [Unknown]
  - Somnolence [Unknown]
  - Vomiting [Unknown]
  - Nausea [Unknown]
